FAERS Safety Report 16808395 (Version 1)
Quarter: 2019Q3

REPORT INFORMATION
  Report Type: Spontaneous
  Country: CA (occurrence: CA)
  Receive Date: 20190916
  Receipt Date: 20190916
  Transmission Date: 20191005
  Serious: Yes (Hospitalization, Other)
  Sender: FDA-Public Use
  Company Number: CA-TEVA-2019-CA-1108942

PATIENT
  Age: 62 Year
  Sex: Female

DRUGS (5)
  1. CELECOXIB. [Suspect]
     Active Substance: CELECOXIB
     Indication: PRODUCT USED FOR UNKNOWN INDICATION
     Route: 048
  2. FENTANYL CITRATE INJECTION [Interacting]
     Active Substance: FENTANYL CITRATE
     Indication: BACK PAIN
     Dosage: SOLUTION EPIDURAL
     Route: 058
  3. HEPARIN SODIUM. [Interacting]
     Active Substance: HEPARIN SODIUM
     Indication: PRODUCT USED FOR UNKNOWN INDICATION
     Dosage: SOLUTION INTRAVENOUS
     Route: 058
  4. ACETYLSALICYLIC ACID [Interacting]
     Active Substance: ASPIRIN
     Indication: PRODUCT USED FOR UNKNOWN INDICATION
     Route: 048
  5. BUPIVACAINE. [Interacting]
     Active Substance: BUPIVACAINE
     Dosage: SOLUTION BLOCK/INFILTRATION
     Route: 065

REACTIONS (2)
  - Labelled drug-drug interaction medication error [Unknown]
  - Spinal epidural haematoma [Unknown]
